FAERS Safety Report 16783512 (Version 3)
Quarter: 2019Q4

REPORT INFORMATION
  Report Type: Report from Study
  Country: CA (occurrence: CA)
  Receive Date: 20190907
  Receipt Date: 20191026
  Transmission Date: 20200122
  Serious: Yes (Other)
  Sender: FDA-Public Use
  Company Number: CA-AMGEN-CANCT2019145731

PATIENT
  Age: 64 Year
  Sex: Female

DRUGS (1)
  1. AIMOVIG [Suspect]
     Active Substance: ERENUMAB-AOOE
     Indication: MIGRAINE
     Dosage: UNK
     Route: 065
     Dates: start: 20190821, end: 20191015

REACTIONS (2)
  - Blood pressure increased [Recovering/Resolving]
  - Diplopia [Recovered/Resolved]

NARRATIVE: CASE EVENT DATE: 201908
